FAERS Safety Report 13194072 (Version 3)
Quarter: 2018Q1

REPORT INFORMATION
  Report Type: Spontaneous
  Country: FR (occurrence: FR)
  Receive Date: 20170207
  Receipt Date: 20180208
  Transmission Date: 20180508
  Serious: Yes (Other)
  Sender: FDA-Public Use
  Company Number: FR-SA-2017SA017646

PATIENT
  Age: 59 Year
  Sex: Male
  Weight: 61 kg

DRUGS (10)
  1. PYOSTACINE [Suspect]
     Active Substance: PRISTINAMYCIN
     Route: 048
     Dates: end: 20160111
  2. LEVOCARNIL [Suspect]
     Active Substance: LEVOCARNITINE
     Dosage: DOSE: 2-2-2
     Route: 048
     Dates: start: 20170112
  3. LOVENOX [Suspect]
     Active Substance: ENOXAPARIN SODIUM
     Route: 065
  4. PARACETAMOL [Suspect]
     Active Substance: ACETAMINOPHEN
     Route: 042
     Dates: end: 20170111
  5. LEVOFLOXACIN. [Suspect]
     Active Substance: LEVOFLOXACIN
     Indication: ANTIBIOTIC PROPHYLAXIS
     Route: 048
     Dates: start: 20170112, end: 20170113
  6. COLCHICINE OPOCALCIUM [Suspect]
     Active Substance: COLCHICINE
     Indication: BEHCET^S SYNDROME
     Route: 048
     Dates: start: 20170112, end: 20170113
  7. COLCHICINE OPOCALCIUM [Suspect]
     Active Substance: COLCHICINE
     Indication: BEHCET^S SYNDROME
     Route: 048
     Dates: start: 20160113
  8. INEXIUM [Suspect]
     Active Substance: ESOMEPRAZOLE
     Route: 048
  9. ACUPAN [Suspect]
     Active Substance: NEFOPAM HYDROCHLORIDE
     Route: 042
  10. ACTISKENAN [Suspect]
     Active Substance: MORPHINE SULFATE
     Dosage: FREQUENCY: 6 TIMESDAILY
     Route: 048

REACTIONS (6)
  - Hepatocellular injury [Recovered/Resolved]
  - Blood bilirubin increased [Recovered/Resolved]
  - Blood alkaline phosphatase increased [Recovered/Resolved]
  - Cholestasis [Recovered/Resolved]
  - Gamma-glutamyltransferase increased [Recovered/Resolved]
  - Transaminases increased [Recovered/Resolved]

NARRATIVE: CASE EVENT DATE: 20170113
